FAERS Safety Report 5671756-5 (Version None)
Quarter: 2008Q1

REPORT INFORMATION
  Report Type: 
  Country: None (occurrence: None)
  Receive Date: 20080314
  Receipt Date: 20080310
  Transmission Date: 20080703
  Serious: Yes (Death)
  Sender: FDA-Public Use
  Company Number: 2008SP004900

PATIENT
  Age: 52 Year
  Sex: Male

DRUGS (2)
  1. PEG-INTRON [Suspect]
     Indication: HEPATITIS
     Dosage: 120 DF; SC
     Route: 058
  2. REBETOL [Suspect]
     Indication: HEPATITIS
     Dosage: 1000 MG; QD; PO
     Route: 048

REACTIONS (1)
  - DEATH [None]
